FAERS Safety Report 10701681 (Version 2)
Quarter: 2015Q1

REPORT INFORMATION
  Report Type: Report from Study
  Country: US (occurrence: US)
  Receive Date: 20150109
  Receipt Date: 20150121
  Transmission Date: 20150721
  Serious: Yes (Other)
  Sender: FDA-Public Use
  Company Number: US-PURDUE-USA-2015-0120032

PATIENT
  Age: 57 Year
  Sex: Male

DRUGS (1)
  1. OXYCONTIN [Suspect]
     Active Substance: OXYCODONE HYDROCHLORIDE
     Indication: PAIN
     Dosage: 40 MG, TID
     Route: 048
     Dates: start: 201308

REACTIONS (5)
  - Dyspnoea [Unknown]
  - Fall [Recovered/Resolved]
  - Pain [Unknown]
  - Multiple fractures [Unknown]
  - Concussion [Unknown]

NARRATIVE: CASE EVENT DATE: 20150111
